FAERS Safety Report 12983794 (Version 1)
Quarter: 2016Q4

REPORT INFORMATION
  Report Type: Spontaneous
  Country: US (occurrence: US)
  Receive Date: 20161129
  Receipt Date: 20161129
  Transmission Date: 20170207
  Serious: No
  Sender: FDA-Public Use
  Company Number: US-WARNER CHILCOTT, LLC-1060179

PATIENT
  Sex: Female

DRUGS (2)
  1. LO LOESTRIN FE [Suspect]
     Active Substance: ETHINYL ESTRADIOL\NORETHINDRONE ACETATE
     Indication: MENSTRUATION IRREGULAR
     Route: 048
  2. MULTIVITAMIN [Concomitant]
     Active Substance: VITAMINS

REACTIONS (3)
  - Product use issue [Not Recovered/Not Resolved]
  - Alopecia [Not Recovered/Not Resolved]
  - Hair texture abnormal [Not Recovered/Not Resolved]
